FAERS Safety Report 6366634-2 (Version None)
Quarter: 2009Q3

REPORT INFORMATION
  Report Type: 
  Country: None (occurrence: None)
  Receive Date: 20090921
  Receipt Date: 20090910
  Transmission Date: 20100115
  Serious: Yes (Other)
  Sender: FDA-Public Use
  Company Number: PHHY2009CA39125

PATIENT
  Sex: Male

DRUGS (3)
  1. CLOZARIL [Suspect]
     Indication: SCHIZOPHRENIA, PARANOID TYPE
     Dosage: UNK
     Dates: start: 20060523
  2. EFFEXOR [Concomitant]
  3. EPIVAL [Concomitant]

REACTIONS (2)
  - TESTICULAR OPERATION [None]
  - TESTIS CANCER [None]
